FAERS Safety Report 8016240-9 (Version None)
Quarter: 2011Q4

REPORT INFORMATION
  Report Type: 
  Country: None (occurrence: None)
  Receive Date: 20111228
  Receipt Date: 20111228
  Transmission Date: 20120403
  Serious: Yes (Hospitalization)
  Sender: FDA-Public Use
  Company Number: None

PATIENT
  Age: 63 Year
  Sex: Female
  Weight: 52.27 kg

DRUGS (1)
  1. ARMODAFINIL [Suspect]
     Dosage: 150 MG DAILY PO
     Route: 048
     Dates: start: 20111024, end: 20111208

REACTIONS (2)
  - THROMBOTIC STROKE [None]
  - RASH [None]
